FAERS Safety Report 7089625-5 (Version None)
Quarter: 2010Q4

REPORT INFORMATION
  Report Type: 
  Country: None (occurrence: None)
  Receive Date: 20101108
  Receipt Date: 20101027
  Transmission Date: 20110411
  Serious: Yes (Other)
  Sender: FDA-Public Use
  Company Number: BE-ELI_LILLY_AND_COMPANY-BE201007006757

PATIENT
  Sex: Male
  Weight: 69 kg

DRUGS (8)
  1. ALIMTA [Suspect]
     Indication: LUNG NEOPLASM MALIGNANT
     Dosage: 900 MG, UNKNOWN
     Route: 042
     Dates: start: 20100621, end: 20100621
  2. ALIMTA [Suspect]
     Dosage: UNK, UNKNOWN
     Route: 042
     Dates: start: 20100713
  3. CISPLATIN [Concomitant]
     Indication: LUNG NEOPLASM MALIGNANT
     Dosage: 135 MG, UNKNOWN
     Route: 042
     Dates: start: 20100621, end: 20100621
  4. CISPLATIN [Concomitant]
     Dosage: UNK, UNKNOWN
     Route: 042
     Dates: start: 20100713
  5. VITAMIN B-12 [Concomitant]
     Dosage: UNK, UNKNOWN
     Route: 065
     Dates: start: 20100616
  6. DEXAMETHASONE [Concomitant]
     Dosage: 4 MG, 2/D
     Route: 065
     Dates: start: 20100620, end: 20100622
  7. FOLIC ACID [Concomitant]
     Dosage: 0.4 MG, UNKNOWN
     Route: 065
     Dates: start: 20100616
  8. DAFALGAN [Concomitant]
     Dosage: UNK, UNKNOWN
     Route: 065
     Dates: start: 20100606

REACTIONS (2)
  - PARANEOPLASTIC SYNDROME [None]
  - SKIN DISCOLOURATION [None]
